FAERS Safety Report 10047321 (Version 1)
Quarter: 2014Q1

REPORT INFORMATION
  Report Type: Spontaneous
  Country: US (occurrence: US)
  Receive Date: 20140331
  Receipt Date: 20140331
  Transmission Date: 20141002
  Serious: No
  Sender: FDA-Public Use
  Company Number: US-MYLANLABS-2014S1001458

PATIENT
  Sex: Female

DRUGS (4)
  1. FENTANYL TRANSDERMAL SYSTEM [Suspect]
     Indication: PAIN
     Dosage: CHANGED Q48H
     Route: 062
     Dates: start: 2013
  2. BENADRYL [Concomitant]
     Indication: APPLICATION SITE REACTION
     Route: 048
  3. BENADRYL [Concomitant]
     Indication: APPLICATION SITE REACTION
     Dosage: CREAM
     Route: 061
  4. BENADRYL [Concomitant]
     Indication: APPLICATION SITE REACTION
     Dosage: SPRAY
     Route: 061

REACTIONS (5)
  - Application site pain [Not Recovered/Not Resolved]
  - Application site pruritus [Not Recovered/Not Resolved]
  - Application site rash [Not Recovered/Not Resolved]
  - Application site inflammation [Not Recovered/Not Resolved]
  - Application site erythema [Not Recovered/Not Resolved]
